FAERS Safety Report 15236741 (Version 1)
Quarter: 2018Q3

REPORT INFORMATION
  Report Type: Spontaneous
  Country: US (occurrence: US)
  Receive Date: 20180803
  Receipt Date: 20180803
  Transmission Date: 20181010
  Serious: No
  Sender: FDA-Public Use
  Company Number: US-ALLERGAN-1809314US

PATIENT
  Sex: Female

DRUGS (1)
  1. RHOFADE [Suspect]
     Active Substance: OXYMETAZOLINE HYDROCHLORIDE
     Indication: ERYTHEMA
     Dosage: UNK UNK, BID (AM AND PM)
     Route: 061

REACTIONS (2)
  - Drug prescribing error [Unknown]
  - Product container issue [Unknown]

NARRATIVE: CASE EVENT DATE: 201802
